FAERS Safety Report 22965652 (Version 3)
Quarter: 2023Q4

REPORT INFORMATION
  Report Type: Report from Study
  Country: JP (occurrence: JP)
  Receive Date: 20230921
  Receipt Date: 20231115
  Transmission Date: 20240109
  Serious: Yes (Death)
  Sender: FDA-Public Use
  Company Number: JP-SERVIER-S23010605

PATIENT
  Age: 74 Year
  Sex: Female
  Weight: 56.5 kg

DRUGS (27)
  1. ONIVYDE [Suspect]
     Active Substance: IRINOTECAN HYDROCHLORIDE
     Indication: Pancreatic carcinoma
     Dosage: 56 MG/M2
     Route: 065
     Dates: start: 20221108, end: 20221108
  2. ONIVYDE [Suspect]
     Active Substance: IRINOTECAN HYDROCHLORIDE
     Dosage: 56 MG/M2
     Route: 065
     Dates: start: 20221121, end: 20221121
  3. ONIVYDE [Suspect]
     Active Substance: IRINOTECAN HYDROCHLORIDE
     Dosage: 56 MG/M2
     Route: 065
     Dates: start: 20221219, end: 20221219
  4. ONIVYDE [Suspect]
     Active Substance: IRINOTECAN HYDROCHLORIDE
     Dosage: 56 MG/M2
     Route: 065
     Dates: start: 20230116, end: 20230116
  5. ONIVYDE [Suspect]
     Active Substance: IRINOTECAN HYDROCHLORIDE
     Dosage: 56 MG/M2
     Route: 065
     Dates: start: 20230130, end: 20230130
  6. ONIVYDE [Suspect]
     Active Substance: IRINOTECAN HYDROCHLORIDE
     Dosage: 56 MG/M2
     Route: 065
     Dates: start: 20230213, end: 20230213
  7. ONIVYDE [Suspect]
     Active Substance: IRINOTECAN HYDROCHLORIDE
     Dosage: 56 MG/M2
     Route: 065
     Dates: start: 20230227, end: 20230227
  8. ONIVYDE [Suspect]
     Active Substance: IRINOTECAN HYDROCHLORIDE
     Dosage: 56 MG/M2
     Route: 065
     Dates: start: 20230313, end: 20230313
  9. LEVOLEUCOVORIN CALCIUM [Concomitant]
     Active Substance: LEVOLEUCOVORIN CALCIUM
     Indication: Pancreatic carcinoma
     Dosage: 200 MG/M2
     Route: 065
     Dates: start: 20221108, end: 20221108
  10. LEVOLEUCOVORIN CALCIUM [Concomitant]
     Active Substance: LEVOLEUCOVORIN CALCIUM
     Dosage: 200 MG/M2
     Route: 065
     Dates: start: 20221121, end: 20221121
  11. LEVOLEUCOVORIN CALCIUM [Concomitant]
     Active Substance: LEVOLEUCOVORIN CALCIUM
     Dosage: 200 MG/M2
     Route: 065
     Dates: start: 20221219, end: 20221219
  12. LEVOLEUCOVORIN CALCIUM [Concomitant]
     Active Substance: LEVOLEUCOVORIN CALCIUM
     Dosage: 200 MG/M2
     Route: 065
     Dates: start: 20230116, end: 20230116
  13. LEVOLEUCOVORIN CALCIUM [Concomitant]
     Active Substance: LEVOLEUCOVORIN CALCIUM
     Dosage: 200 MG/M2
     Route: 065
     Dates: start: 20230130, end: 20230130
  14. LEVOLEUCOVORIN CALCIUM [Concomitant]
     Active Substance: LEVOLEUCOVORIN CALCIUM
     Dosage: 200 MG/M2
     Route: 065
     Dates: start: 20230213, end: 20230213
  15. LEVOLEUCOVORIN CALCIUM [Concomitant]
     Active Substance: LEVOLEUCOVORIN CALCIUM
     Dosage: 200 MG/M2
     Route: 065
     Dates: start: 20230227, end: 20230227
  16. LEVOLEUCOVORIN CALCIUM [Concomitant]
     Active Substance: LEVOLEUCOVORIN CALCIUM
     Dosage: 200 MG/M2
     Route: 065
     Dates: start: 20230313, end: 20230313
  17. FLUOROURACIL [Concomitant]
     Active Substance: FLUOROURACIL
     Indication: Pancreatic carcinoma
     Dosage: 1920 MG/M2
     Route: 065
     Dates: start: 20221108, end: 20221110
  18. FLUOROURACIL [Concomitant]
     Active Substance: FLUOROURACIL
     Dosage: 1920 MG/M2
     Route: 065
     Dates: start: 20221121, end: 20221123
  19. FLUOROURACIL [Concomitant]
     Active Substance: FLUOROURACIL
     Dosage: 1920 MG/M2
     Route: 065
     Dates: start: 20221219, end: 20221221
  20. FLUOROURACIL [Concomitant]
     Active Substance: FLUOROURACIL
     Dosage: 1920 MG/M2
     Route: 065
     Dates: start: 20230116, end: 20230118
  21. FLUOROURACIL [Concomitant]
     Active Substance: FLUOROURACIL
     Dosage: 1920 MG/M2
     Route: 065
     Dates: start: 20230130, end: 20230201
  22. FLUOROURACIL [Concomitant]
     Active Substance: FLUOROURACIL
     Dosage: 1920 MG/M2
     Route: 065
     Dates: start: 20230213, end: 20230215
  23. FLUOROURACIL [Concomitant]
     Active Substance: FLUOROURACIL
     Dosage: 1920 MG/M2
     Route: 065
     Dates: start: 20230227, end: 20230301
  24. FLUOROURACIL [Concomitant]
     Active Substance: FLUOROURACIL
     Dosage: 1920 MG/M2
     Route: 065
     Dates: start: 20230313, end: 20230315
  25. PALONOSETRON HYDROCHLORIDE [Concomitant]
     Active Substance: PALONOSETRON HYDROCHLORIDE
     Indication: Chemotherapy side effect prophylaxis
     Dosage: UNK
     Route: 065
  26. DEXAMETHASONE SODIUM PHOSPHATE [Concomitant]
     Active Substance: DEXAMETHASONE SODIUM PHOSPHATE
     Indication: Chemotherapy side effect prophylaxis
     Dosage: UNK
     Route: 065
  27. DEXAMETHASONE [Concomitant]
     Active Substance: DEXAMETHASONE
     Indication: Chemotherapy side effect prophylaxis
     Dosage: UNK
     Route: 048

REACTIONS (2)
  - Malignant neoplasm progression [Fatal]
  - Off label use [Recovered/Resolved]

NARRATIVE: CASE EVENT DATE: 20221108
